FAERS Safety Report 24187988 (Version 1)
Quarter: 2024Q3

REPORT INFORMATION
  Report Type: Spontaneous
  Country: US (occurrence: US)
  Receive Date: 20240808
  Receipt Date: 20240808
  Transmission Date: 20241017
  Serious: No
  Sender: AUROBINDO
  Company Number: US-AUROBINDO-AUR-APL-2024-022586

PATIENT
  Age: 81 Year
  Sex: Male

DRUGS (1)
  1. LEVOFLOXACIN [Suspect]
     Active Substance: LEVOFLOXACIN
     Indication: Product used for unknown indication
     Dosage: UNK
     Route: 065

REACTIONS (7)
  - Palpitations [Unknown]
  - Illness [Unknown]
  - Movement disorder [Not Recovered/Not Resolved]
  - Back pain [Unknown]
  - Faeces discoloured [Recovered/Resolved]
  - Chromaturia [Recovered/Resolved]
  - Pain [Unknown]
